FAERS Safety Report 5787873-5 (Version None)
Quarter: 2008Q2

REPORT INFORMATION
  Report Type: 
  Country: None (occurrence: None)
  Receive Date: 20080624
  Receipt Date: 20080624
  Transmission Date: 20081010
  Serious: Yes (Other)
  Sender: FDA-Public Use
  Company Number: None

PATIENT
  Age: 5 Year
  Sex: Male
  Weight: 21.3191 kg

DRUGS (2)
  1. SINGULAIR [Suspect]
     Indication: COUGH
     Dosage: 1 TABLET AT NIGHT 1XA PO
     Route: 048
     Dates: start: 20080617, end: 20080623
  2. SINGULAIR [Suspect]
     Indication: MULTIPLE ALLERGIES
     Dosage: 1 TABLET AT NIGHT 1XA PO
     Route: 048
     Dates: start: 20080617, end: 20080623

REACTIONS (6)
  - ABNORMAL BEHAVIOUR [None]
  - EMOTIONAL DISORDER [None]
  - FALL [None]
  - MOOD ALTERED [None]
  - PHYSICAL ASSAULT [None]
  - SCAB [None]
